FAERS Safety Report 6420092-8 (Version None)
Quarter: 2009Q4

REPORT INFORMATION
  Report Type: 
  Country: None (occurrence: None)
  Receive Date: 20091029
  Receipt Date: 20091020
  Transmission Date: 20100525
  Serious: Yes (Hospitalization)
  Sender: FDA-Public Use
  Company Number: SE-PFIZER INC-2009285624

PATIENT
  Age: 67 Year

DRUGS (2)
  1. DALACIN [Suspect]
     Dosage: UNK
     Dates: start: 20090801, end: 20090903
  2. DIFLUCAN [Suspect]
     Dosage: UNK
     Dates: start: 20090801, end: 20090903

REACTIONS (1)
  - URTICARIA [None]
